FAERS Safety Report 8457466-X (Version None)
Quarter: 2012Q2

REPORT INFORMATION
  Report Type: 
  Country: None (occurrence: None)
  Receive Date: 20120621
  Receipt Date: 20120618
  Transmission Date: 20120825
  Serious: Yes (Hospitalization)
  Sender: FDA-Public Use
  Company Number: DE-TEVA-344154USA

PATIENT
  Sex: Female
  Weight: 73 kg

DRUGS (2)
  1. TREANDA [Suspect]
     Route: 042
     Dates: start: 20111216
  2. RITUXIMAB [Suspect]
     Route: 042
     Dates: start: 20111215

REACTIONS (2)
  - CLOSTRIDIAL INFECTION [None]
  - PNEUMONIA [None]
